FAERS Safety Report 11931693 (Version 1)
Quarter: 2016Q1

REPORT INFORMATION
  Report Type: Spontaneous
  Country: SE (occurrence: SE)
  Receive Date: 20160120
  Receipt Date: 20160120
  Transmission Date: 20160526
  Serious: Yes (Other)
  Sender: FDA-Public Use
  Company Number: SE-TEVA-626073ISR

PATIENT
  Age: 79 Year
  Sex: Female

DRUGS (1)
  1. MEMANTINE. [Suspect]
     Active Substance: MEMANTINE

REACTIONS (2)
  - International normalised ratio [Recovered/Resolved]
  - Blood pressure decreased [Recovered/Resolved]
